FAERS Safety Report 5082864-4 (Version None)
Quarter: 2006Q3

REPORT INFORMATION
  Report Type: 
  Country: None (occurrence: None)
  Receive Date: 20060720
  Receipt Date: 20060126
  Transmission Date: 20061208
  Serious: Yes (Hospitalization, Other)
  Sender: FDA-Public Use
  Company Number: 2006013680

PATIENT
  Age: 57 Year
  Sex: Female

DRUGS (4)
  1. CELEBREX [Suspect]
     Indication: ILL-DEFINED DISORDER
  2. SONATA [Concomitant]
  3. TIAZAC [Concomitant]
  4. FUROSEMIDE [Concomitant]

REACTIONS (3)
  - ABDOMINAL PAIN [None]
  - FAECES DISCOLOURED [None]
  - GASTRIC ULCER [None]
